FAERS Safety Report 9812136 (Version 2)
Quarter: 2014Q1

REPORT INFORMATION
  Report Type: Spontaneous
  Country: US (occurrence: US)
  Receive Date: 20140111
  Receipt Date: 20140120
  Transmission Date: 20141002
  Serious: Yes (Life-Threatening, Disabling, Other)
  Sender: FDA-Public Use
  Company Number: US-009507513-1401USA003668

PATIENT
  Age: 34 Year
  Sex: Female

DRUGS (1)
  1. NUVARING [Suspect]
     Indication: CONTRACEPTION
     Dosage: DOSE AS DIRECTED
     Route: 067
     Dates: start: 2013, end: 2013

REACTIONS (1)
  - Cerebrovascular accident [Recovered/Resolved]
